FAERS Safety Report 4718639-2 (Version None)
Quarter: 2005Q3

REPORT INFORMATION
  Report Type: 
  Country: None (occurrence: None)
  Receive Date: 20050720
  Receipt Date: 20050714
  Transmission Date: 20060218
  Serious: Yes (Other)
  Sender: FDA-Public Use
  Company Number: CH-GLAXOSMITHKLINE-B0388028A

PATIENT
  Age: 52 Year
  Sex: Female
  Weight: 64 kg

DRUGS (3)
  1. NARAMIG [Suspect]
     Indication: MIGRAINE
     Dosage: 2.5MG TWICE PER DAY
     Route: 048
     Dates: start: 20050603, end: 20050608
  2. ASPIRIN [Concomitant]
     Indication: MIGRAINE
     Dosage: 500MG PER DAY
     Route: 048
     Dates: start: 20050603, end: 20050604
  3. ACETAMINOPHEN [Concomitant]
     Indication: MIGRAINE
     Dosage: 1000MG PER DAY
     Route: 048
     Dates: start: 20050603, end: 20050604

REACTIONS (9)
  - ALANINE AMINOTRANSFERASE INCREASED [None]
  - ASPARTATE AMINOTRANSFERASE INCREASED [None]
  - BLOOD ALKALINE PHOSPHATASE INCREASED [None]
  - BLOOD BILIRUBIN INCREASED [None]
  - CHOLESTASIS [None]
  - CYTOLYTIC HEPATITIS [None]
  - GAMMA-GLUTAMYLTRANSFERASE INCREASED [None]
  - HEPATOCELLULAR DAMAGE [None]
  - JAUNDICE [None]
